FAERS Safety Report 9917148 (Version 1)
Quarter: 2014Q1

REPORT INFORMATION
  Report Type: Spontaneous
  Country: IT (occurrence: IT)
  Receive Date: 20140221
  Receipt Date: 20140221
  Transmission Date: 20141002
  Serious: Yes (Other)
  Sender: FDA-Public Use
  Company Number: IT-ACTAVIS-2014-02705

PATIENT
  Age: 76 Year
  Sex: Male

DRUGS (3)
  1. IRINOTECAN (UNKNOWN) [Suspect]
     Indication: COLON CANCER METASTATIC
     Dosage: 200 MG, CYCLICAL
     Route: 042
     Dates: start: 20130514, end: 20140102
  2. FLUOROURACIL (UNKNOWN) [Suspect]
     Indication: COLON CANCER
     Dosage: 2160 MG, CYCLICAL
     Route: 042
     Dates: start: 20130514, end: 20140102
  3. LEDERFOLIN [Concomitant]
     Indication: PRODUCT USED FOR UNKNOWN INDICATION
     Dosage: UNK

REACTIONS (1)
  - Hypercreatinaemia [Unknown]
